FAERS Safety Report 4600449-8 (Version None)
Quarter: 2005Q1

REPORT INFORMATION
  Report Type: 
  Country: None (occurrence: None)
  Receive Date: 20050304
  Receipt Date: 20050224
  Transmission Date: 20050727
  Serious: Yes (Death)
  Sender: FDA-Public Use
  Company Number: 212737

PATIENT
  Age: 76 Year
  Sex: Male
  Weight: 72.1 kg

DRUGS (5)
  1. AVASTIN [Suspect]
     Indication: SMALL CELL LUNG CANCER STAGE UNSPECIFIED
     Dosage: 750 MG, INTRAVENOUS
     Route: 042
     Dates: start: 20041101, end: 20050208
  2. NORVASC [Concomitant]
  3. LIPITOR [Concomitant]
  4. ENTERIC COATED ASA (ASPIRIN) [Concomitant]
  5. ALBUTEROL INHALER (ALBUTEROL, ALBUTEROL SULFATE) [Concomitant]

REACTIONS (19)
  - ANURIA [None]
  - ATELECTASIS [None]
  - BACK PAIN [None]
  - BLOOD URINE PRESENT [None]
  - CHILLS [None]
  - COMA [None]
  - CONFUSIONAL STATE [None]
  - DYSURIA [None]
  - HEPATIC LESION [None]
  - LARGE INTESTINE PERFORATION [None]
  - LOBAR PNEUMONIA [None]
  - METASTATIC NEOPLASM [None]
  - PERITONITIS [None]
  - PLEURAL EFFUSION [None]
  - PROTEIN URINE PRESENT [None]
  - PULMONARY EMBOLISM [None]
  - RESPIRATORY ARREST [None]
  - TREMOR [None]
  - URINE KETONE BODY PRESENT [None]
